FAERS Safety Report 16784003 (Version 3)
Quarter: 2019Q4

REPORT INFORMATION
  Report Type: Report from Study
  Country: None (occurrence: ES)
  Receive Date: 20190909
  Receipt Date: 20191224
  Transmission Date: 20200122
  Serious: Yes (Hospitalization)
  Sender: FDA-Public Use
  Company Number: ES-ABBVIE-19K-144-2911920-00

PATIENT
  Sex: Female
  Weight: 60 kg

DRUGS (1)
  1. DUODOPA [Suspect]
     Active Substance: CARBIDOPA\LEVODOPA
     Indication: PARKINSON^S DISEASE
     Route: 050
     Dates: start: 20110926

REACTIONS (13)
  - Nervous system disorder [Unknown]
  - Dizziness [Recovered/Resolved]
  - Hyporeflexia [Unknown]
  - Vomiting [Recovered/Resolved]
  - Stoma site infection [Not Recovered/Not Resolved]
  - Paraesthesia [Unknown]
  - Sensory disturbance [Unknown]
  - Dysphagia [Not Recovered/Not Resolved]
  - Stoma site hypergranulation [Recovered/Resolved]
  - General physical health deterioration [Unknown]
  - Nausea [Recovered/Resolved]
  - Peripheral sensorimotor neuropathy [Not Recovered/Not Resolved]
  - On and off phenomenon [Unknown]

NARRATIVE: CASE EVENT DATE: 2019
